FAERS Safety Report 11515903 (Version 1)
Quarter: 2015Q3

REPORT INFORMATION
  Report Type: Spontaneous
  Country: US (occurrence: US)
  Receive Date: 20150916
  Receipt Date: 20150916
  Transmission Date: 20151125
  Serious: Yes (Other)
  Sender: FDA-Public Use
  Company Number: US-TAKEDA-2013TUS000891

PATIENT

DRUGS (4)
  1. AMARYL [Concomitant]
     Active Substance: GLIMEPIRIDE
     Dosage: 8 MG, UNK, DURATION: MORE THAN 10 YEARS
  2. HUMALOG [Concomitant]
     Active Substance: INSULIN LISPRO
     Dosage: 60 MG, TID
     Dates: start: 1998
  3. LANTUS [Concomitant]
     Active Substance: INSULIN GLARGINE
     Dosage: 130 IU, BID
     Dates: start: 1996
  4. ACTOS [Suspect]
     Active Substance: PIOGLITAZONE HYDROCHLORIDE
     Indication: TYPE 2 DIABETES MELLITUS
     Dosage: 45 MG, UNK
     Route: 048
     Dates: start: 20050910, end: 20071205

REACTIONS (2)
  - Myocardial infarction [Unknown]
  - Bladder cancer [Unknown]

NARRATIVE: CASE EVENT DATE: 201302
